FAERS Safety Report 4376941-0 (Version None)
Quarter: 2004Q2

REPORT INFORMATION
  Report Type: 
  Country: None (occurrence: None)
  Receive Date: 20040608
  Receipt Date: 20040526
  Transmission Date: 20050107
  Serious: Yes (Hospitalization, Other)
  Sender: FDA-Public Use
  Company Number: 2004035118

PATIENT
  Age: 73 Year
  Sex: Male

DRUGS (3)
  1. NORVASC [Suspect]
     Indication: HYPERTENSION
  2. NIFEDIPINE [Suspect]
     Indication: HYPERTENSION
  3. ENALAPRIL MALEATE [Suspect]
     Indication: HYPERTENSION
     Dates: start: 19990101, end: 20020901

REACTIONS (8)
  - ANGIONEUROTIC OEDEMA [None]
  - BLOOD GLUCOSE INCREASED [None]
  - BLOOD PRESSURE DECREASED [None]
  - GENERALISED ERYTHEMA [None]
  - MACROGLOSSIA [None]
  - OEDEMA PERIPHERAL [None]
  - PRURITUS [None]
  - SPEECH DISORDER [None]
